FAERS Safety Report 8390130-4 (Version None)
Quarter: 2012Q2

REPORT INFORMATION
  Report Type: 
  Country: None (occurrence: None)
  Receive Date: 20120529
  Receipt Date: 20120521
  Transmission Date: 20120825
  Serious: Yes (Other)
  Sender: FDA-Public Use
  Company Number: US-BAYER-2012-025922

PATIENT
  Age: 56 Year
  Sex: Female
  Weight: 87.528 kg

DRUGS (13)
  1. BETASERON [Suspect]
     Indication: MULTIPLE SCLEROSIS
     Dosage: UNK
     Dates: start: 20111114
  2. BETASERON [Suspect]
     Dosage: 8 MIU, UNK
     Route: 058
     Dates: end: 20120316
  3. OMEPRAZOLE [Concomitant]
     Dosage: 40 MG, UNK
  4. BETASERON [Suspect]
     Dosage: .3 MG, QOD
     Route: 058
     Dates: start: 20111201
  5. LISINOPRIL [Concomitant]
  6. BACLOFEN [Concomitant]
     Dosage: 10 MG, UNK
  7. MEDICATION FOR VERTIGO [Concomitant]
  8. IBUPROFEN [Concomitant]
     Indication: PRODUCT USED FOR UNKNOWN INDICATION
     Dosage: 600 MG, UNK
  9. CYCLOBENAZPRINE [Concomitant]
     Dosage: 2.5 MG, UNK
  10. CYMBALTA [Concomitant]
     Dosage: 30 MG, UNK
  11. LIPITOR [Concomitant]
     Dosage: 10 MG, QD
  12. HYDROCODONE BITARTRATE [Concomitant]
  13. PROVIGIL [Concomitant]
     Indication: PRODUCT USED FOR UNKNOWN INDICATION
     Dosage: 200  MG BID

REACTIONS (12)
  - LIP BLISTER [None]
  - LIP SWELLING [None]
  - URTICARIA [None]
  - ORAL PAIN [None]
  - SWELLING [None]
  - VERTIGO [None]
  - ORAL MUCOSAL BLISTERING [None]
  - TOOTHACHE [None]
  - STOMATITIS [None]
  - LOCAL SWELLING [None]
  - JOINT SWELLING [None]
  - CHEILITIS [None]
